FAERS Safety Report 5444048-7 (Version None)
Quarter: 2007Q3

REPORT INFORMATION
  Report Type: 
  Country: None (occurrence: None)
  Receive Date: 20070905
  Receipt Date: 20070827
  Transmission Date: 20080115
  Serious: Yes (Hospitalization)
  Sender: FDA-Public Use
  Company Number: JP-MERCK-0708USA05853

PATIENT
  Age: 51 Year
  Sex: Male

DRUGS (4)
  1. PEPCID RPD [Suspect]
     Indication: GASTRITIS
     Route: 048
     Dates: start: 20030812
  2. PROGRAF [Suspect]
     Indication: MYASTHENIA GRAVIS
     Route: 048
     Dates: start: 20030911, end: 20051211
  3. LOSARTAN POTASSIUM [Suspect]
     Indication: HYPERTENSION
     Route: 048
     Dates: start: 20030812
  4. PREDONINE [Concomitant]
     Indication: MYASTHENIA GRAVIS
     Route: 048
     Dates: start: 20030812

REACTIONS (1)
  - COLITIS ULCERATIVE [None]
